FAERS Safety Report 19699704 (Version 1)
Quarter: 2021Q3

REPORT INFORMATION
  Report Type: Other
  Country: US (occurrence: US)
  Receive Date: 20210813
  Receipt Date: 20210813
  Transmission Date: 20211014
  Serious: Yes (Hospitalization)
  Sender: FDA-Public Use
  Company Number: US-ROCHE-2787124

PATIENT
  Age: 52 Year
  Sex: Female
  Weight: 99.88 kg

DRUGS (3)
  1. OCREVUS [Suspect]
     Active Substance: OCRELIZUMAB
     Route: 042
     Dates: start: 20180516, end: 20180516
  2. NACL [Concomitant]
     Active Substance: SODIUM CHLORIDE
     Route: 042
  3. OCREVUS [Suspect]
     Active Substance: OCRELIZUMAB
     Indication: MULTIPLE SCLEROSIS
     Dosage: PRESCRIBED AS INFUSE 300 MG DAY 1, INFUSE 300 MG DAY 15 THEN INFUSE 600 MG EVERY 6 MONTHS?OF TREATME
     Route: 042
     Dates: start: 20180315

REACTIONS (4)
  - Pneumonia [Recovered/Resolved]
  - Coronavirus infection [Recovered/Resolved]
  - Hypertension [Not Recovered/Not Resolved]
  - Blood pressure decreased [Not Recovered/Not Resolved]

NARRATIVE: CASE EVENT DATE: 202102
